FAERS Safety Report 8812619 (Version 2)
Quarter: 2012Q4

REPORT INFORMATION
  Report Type: 
  Country: DE (occurrence: FR)
  Receive Date: 20120927
  Receipt Date: 20121015
  Transmission Date: 20130627
  Serious: Yes (Hospitalization)
  Sender: FDA-Public Use
  Company Number: FR-FRI-1000039002

PATIENT
  Age: 56 Year
  Sex: Female

DRUGS (9)
  1. MEMANTINE [Suspect]
     Indication: COGNITIVE DISORDER
     Dosage: 10 mg
     Route: 048
     Dates: end: 20120829
  2. LYRICA [Suspect]
     Indication: SCHIZOAFFECTIVE DISORDER BIPOLAR TYPE
     Route: 048
     Dates: start: 20120606, end: 20120821
  3. LYRICA [Suspect]
     Dosage: 150 mg
     Dates: start: 20120822, end: 20120829
  4. LEPONEX [Suspect]
     Indication: BIPOLAR DISORDER
     Dosage: 500 mg
     Route: 048
  5. LYSANXIA [Suspect]
     Indication: BIPOLAR DISORDER
     Dosage: 60 mg
     Route: 048
     Dates: end: 20120829
  6. LYSANXIA [Suspect]
     Route: 048
  7. IMOVANE [Suspect]
     Dosage: 1 DF
     Route: 048
     Dates: end: 20120829
  8. IMOVANE [Suspect]
     Route: 048
  9. VESICARE [Suspect]
     Indication: URINARY INCONTINENCE
     Route: 048
     Dates: end: 20120829

REACTIONS (2)
  - Disturbance in attention [Recovered/Resolved]
  - Speech disorder [Recovered/Resolved]
